FAERS Safety Report 15989271 (Version 1)
Quarter: 2019Q1

REPORT INFORMATION
  Report Type: Report from Study
  Country: IT (occurrence: IT)
  Receive Date: 20190221
  Receipt Date: 20190221
  Transmission Date: 20190418
  Serious: Yes (Other)
  Sender: FDA-Public Use
  Company Number: IT-GLAXOSMITHKLINE-IT2019029235

PATIENT
  Age: 46 Year
  Sex: Female

DRUGS (9)
  1. TRITTICO (TRAZODONE HYDROCHLORIDE) [Suspect]
     Active Substance: TRAZODONE HYDROCHLORIDE
     Indication: OVERDOSE
     Dosage: 450 MG, QD
     Route: 048
     Dates: start: 20181118, end: 20181202
  2. METFORMIN [Suspect]
     Active Substance: METFORMIN HYDROCHLORIDE
     Indication: OVERDOSE
     Dosage: 1 G, QD
     Route: 048
     Dates: start: 20181118, end: 20181129
  3. FLUOXETINE [Suspect]
     Active Substance: FLUOXETINE HYDROCHLORIDE
     Indication: OVERDOSE
     Dosage: 80 MG, QD
     Route: 048
     Dates: start: 20181118, end: 20181202
  4. NEURONTIN [Concomitant]
     Active Substance: GABAPENTIN
     Indication: PRODUCT USED FOR UNKNOWN INDICATION
     Dosage: 600 MG, UNK
     Route: 065
  5. TRILAFON [Concomitant]
     Active Substance: PERPHENAZINE
     Indication: PRODUCT USED FOR UNKNOWN INDICATION
     Dosage: 6 MG, UNK
     Route: 065
  6. LENDORMIN [Concomitant]
     Active Substance: BROTIZOLAM
     Indication: PRODUCT USED FOR UNKNOWN INDICATION
     Dosage: 0.25 MG, UNK
     Route: 065
  7. BUPROPION HYDROCHLORIDE. [Suspect]
     Active Substance: BUPROPION HYDROCHLORIDE
     Indication: OVERDOSE
     Dosage: 400 MG, QD
     Route: 048
     Dates: start: 20181118, end: 20181202
  8. EUTIROX [Concomitant]
     Active Substance: LEVOTHYROXINE SODIUM
     Indication: PRODUCT USED FOR UNKNOWN INDICATION
     Dosage: 75 ?G, UNK
     Route: 065
  9. DELORAZEPAM [Concomitant]
     Active Substance: DELORAZEPAM
     Indication: PRODUCT USED FOR UNKNOWN INDICATION
     Dosage: 60 GTT, UNK
     Route: 065

REACTIONS (3)
  - Overdose [Unknown]
  - Malaise [Not Recovered/Not Resolved]
  - Hallucination, visual [Not Recovered/Not Resolved]

NARRATIVE: CASE EVENT DATE: 2018
